FAERS Safety Report 9468855 (Version 1)
Quarter: 2013Q3

REPORT INFORMATION
  Report Type: Spontaneous
  Country: IT (occurrence: IT)
  Receive Date: 20130821
  Receipt Date: 20130821
  Transmission Date: 20140515
  Serious: Yes (Hospitalization, Other)
  Sender: FDA-Public Use
  Company Number: PHHY2013IT089999

PATIENT
  Age: 84 Year
  Sex: Male

DRUGS (12)
  1. TRAMADOL [Suspect]
     Indication: BACK PAIN
     Dosage: 25 MG, PER DAY
  2. INTANZA [Interacting]
     Indication: INFLUENZA IMMUNISATION
  3. ALLOPURINOL [Concomitant]
     Dosage: 150 MG, PER DAY
  4. DIGOXIN [Concomitant]
     Dosage: 0.625 MG PER DAY
  5. FUROSEMIDE [Concomitant]
     Dosage: 50 MG, PER DAY
  6. PRAMIPEXOLE [Concomitant]
     Dosage: 0.18 MG PER DAY
  7. OLMESARTAN [Concomitant]
     Dosage: 20 MG, PER DAY
  8. PANTOPRAZOLE [Concomitant]
     Dosage: 20 MG, PER DAY
  9. DILTIAZEM [Concomitant]
     Dosage: 240 MG, PER DAY
  10. REPAGLINIDE [Concomitant]
     Dosage: 1.5 MG, PER DAY
  11. SALMETEROL [Concomitant]
     Dosage: 50 UG, BID
  12. FLUTICASONE [Concomitant]
     Dosage: 500 MG, BID

REACTIONS (5)
  - Malaise [Unknown]
  - Hallucination [Recovered/Resolved]
  - Psychomotor hyperactivity [Unknown]
  - Hypotension [Unknown]
  - Drug interaction [Unknown]
